FAERS Safety Report 9286830 (Version 2)
Quarter: 2013Q2

REPORT INFORMATION
  Report Type: Spontaneous
  Country: AU (occurrence: None)
  Receive Date: 20130508
  Receipt Date: 20130514
  Transmission Date: 20140414
  Serious: Yes (Hospitalization)
  Sender: FDA-Public Use
  Company Number: GER/AUS/13/0029394

PATIENT
  Age: 85 Year
  Sex: Male

DRUGS (7)
  1. SIMVASTATIN [Suspect]
     Indication: PRODUCT USED FOR UNKNOWN INDICATION
     Dosage: 1 IN 1 D
  2. ERYTHROMYCIN [Suspect]
     Indication: PNEUMONIA
     Dosage: 2 IN 1 D
  3. CLOPIDOGREL (CLOPIDOGREL) [Concomitant]
  4. LANSOPRAZOLE (LANSOPRAZOLE) [Concomitant]
  5. TIOTROPIUM BROMIDE (TIOTROPIUM BROMIDE) [Concomitant]
  6. BUDESONIDE/ FORMOTEROL (BUDESONIDE W/FORMOTEROL FUMARATE) [Concomitant]
  7. RISEDRONATE (RISEDRONATE SODIUM) [Concomitant]

REACTIONS (3)
  - Rhabdomyolysis [None]
  - Drug interaction [None]
  - Fall [None]
